FAERS Safety Report 9526161 (Version 3)
Quarter: 2013Q4

REPORT INFORMATION
  Report Type: Report from Study
  Country: JP (occurrence: JP)
  Receive Date: 20130916
  Receipt Date: 20131203
  Transmission Date: 20140711
  Serious: Yes (Hospitalization, Other)
  Sender: FDA-Public Use
  Company Number: JP-TEVA-2011001248

PATIENT
  Age: 75 Year
  Sex: Male
  Weight: 51.4 kg

DRUGS (18)
  1. BENDAMUSTINE HCL [Suspect]
     Indication: B-CELL SMALL LYMPHOCYTIC LYMPHOMA
     Dosage: 90 MG/M2 DAILY;
     Route: 042
     Dates: start: 20110202, end: 20110203
  2. RITUXIMAB [Suspect]
     Indication: B-CELL SMALL LYMPHOCYTIC LYMPHOMA
     Route: 042
     Dates: start: 20110201, end: 20110201
  3. RITUXIMAB [Suspect]
     Dosage: FREQUENCY EVERY 10 DAYS 3 CYCLES
     Dates: start: 20050813
  4. RITUXIMAB [Suspect]
     Dosage: FREQUENCY EVERY WEEK 2 CYCLES FROM
     Dates: start: 20080131
  5. FLUDARABINE PHOSPHATE [Suspect]
     Indication: B-CELL SMALL LYMPHOCYTIC LYMPHOMA
     Dates: start: 2005
  6. FLUDARABINE PHOSPHATE [Suspect]
     Dosage: FREQUENCY 4 PER DAY 2 CYCLES
     Dates: start: 20050405
  7. MITOXANTRONE HYDROCHLORIDE [Suspect]
     Indication: B-CELL SMALL LYMPHOCYTIC LYMPHOMA
     Dates: start: 2005
  8. MITOXANTRONE HYDROCHLORIDE [Suspect]
     Dosage: 10 MILLIGRAM DAILY;
     Dates: start: 20050513
  9. CYCLOPHOSPHAMIDE [Suspect]
     Indication: B-CELL SMALL LYMPHOCYTIC LYMPHOMA
     Dates: start: 2005
  10. CORTICOSTEROID NOS [Suspect]
     Indication: B-CELL SMALL LYMPHOCYTIC LYMPHOMA
     Dates: start: 2005
  11. INSULIN HUMAN [Concomitant]
     Dates: end: 20110302
  12. GLIMEPIRIDE [Concomitant]
  13. REBAMIPIDE [Concomitant]
  14. ACICLOVIR [Concomitant]
  15. SULFAMETHOXAZOLE WITH TRIMETHOPRIM [Concomitant]
  16. ISONIAZID [Concomitant]
  17. ALLOPURINOL [Concomitant]
  18. TULOBUTEROL [Concomitant]

REACTIONS (8)
  - Neutrophil count decreased [Recovered/Resolved]
  - Platelet count decreased [Recovering/Resolving]
  - Haemoglobin decreased [Recovering/Resolving]
  - White blood cell count decreased [Not Recovered/Not Resolved]
  - Lymphocyte count decreased [Not Recovered/Not Resolved]
  - Febrile neutropenia [Recovered/Resolved]
  - Hepatocellular carcinoma [Not Recovered/Not Resolved]
  - Squamous cell carcinoma [Recovered/Resolved]
